FAERS Safety Report 18377530 (Version 2)
Quarter: 2021Q1

REPORT INFORMATION
  Report Type: Report from Study
  Country: CA (occurrence: CA)
  Receive Date: 20201013
  Receipt Date: 20210329
  Transmission Date: 20210419
  Serious: Yes (Hospitalization)
  Sender: FDA-Public Use
  Company Number: CA-GLAXOSMITHKLINE-CA2020AMR192132

PATIENT
  Sex: Male

DRUGS (1)
  1. MEPOLIZUMAB [Suspect]
     Active Substance: MEPOLIZUMAB
     Indication: ASTHMA
     Dosage: 100 MG, Z, MONTHLY
     Route: 042
     Dates: start: 20190221

REACTIONS (7)
  - Wheezing [Unknown]
  - Dyspnoea [Unknown]
  - Hospitalisation [Unknown]
  - Peripheral swelling [Unknown]
  - Asthma [Unknown]
  - Hypoaesthesia [Unknown]
  - Muscle atrophy [Unknown]
